FAERS Safety Report 11118552 (Version 1)
Quarter: 2015Q2

REPORT INFORMATION
  Report Type: Spontaneous
  Country: CA (occurrence: CA)
  Receive Date: 20150518
  Receipt Date: 20150518
  Transmission Date: 20150821
  Serious: Yes (Other)
  Sender: FDA-Public Use
  Company Number: CA-RECORDATI RARE DISEASES-CA-R13005-15-00068

PATIENT
  Age: 5 Year
  Sex: Female

DRUGS (3)
  1. DOXORUBICINE HYDROCHLORIDE [Suspect]
     Active Substance: DOXORUBICIN HYDROCHLORIDE
     Indication: NEPHROBLASTOMA
     Route: 065
  2. VINCRISTINE SULFATE. [Suspect]
     Active Substance: VINCRISTINE SULFATE
     Indication: NEPHROBLASTOMA
     Route: 065
  3. COSMEGEN [Suspect]
     Active Substance: DACTINOMYCIN
     Indication: NEPHROBLASTOMA
     Route: 065

REACTIONS (1)
  - Pulmonary arterial hypertension [Unknown]
